FAERS Safety Report 8245023-X (Version None)
Quarter: 2012Q1

REPORT INFORMATION
  Report Type: 
  Country: None (occurrence: None)
  Receive Date: 20120329
  Receipt Date: 20120327
  Transmission Date: 20120608
  Serious: No
  Sender: FDA-Public Use
  Company Number: US-PFIZER INC-2012079418

PATIENT
  Sex: Female
  Weight: 75.283 kg

DRUGS (3)
  1. TRAZODONE [Concomitant]
     Indication: SLEEP DISORDER
     Dosage: 15 MG, DAILY
  2. LIPITOR [Suspect]
     Indication: BLOOD CHOLESTEROL ABNORMAL
     Dosage: 10 MG, 3X/WEEK
     Route: 048
  3. ACETYLSALICYLIC ACID [Concomitant]
     Dosage: 81 MG, DAILY

REACTIONS (4)
  - PAIN IN EXTREMITY [None]
  - DISCOMFORT [None]
  - MYALGIA [None]
  - BACK PAIN [None]
